FAERS Safety Report 22226333 (Version 1)
Quarter: 2023Q2

REPORT INFORMATION
  Report Type: Spontaneous
  Country: US (occurrence: US)
  Receive Date: 20230419
  Receipt Date: 20230419
  Transmission Date: 20230721
  Serious: Yes (Death, Other)
  Sender: FDA-Public Use
  Company Number: US-drreddys-LIT/USA/23/0163840

PATIENT
  Age: 72 Year
  Sex: Female

DRUGS (12)
  1. DEXAMETHASONE [Suspect]
     Active Substance: DEXAMETHASONE
     Indication: Plasma cell myeloma
  2. DEXAMETHASONE [Suspect]
     Active Substance: DEXAMETHASONE
  3. BORTEZOMIB [Suspect]
     Active Substance: BORTEZOMIB
     Indication: Plasma cell myeloma
  4. CARFILZOMIB [Suspect]
     Active Substance: CARFILZOMIB
     Indication: Plasma cell myeloma
  5. CYCLOPHOSPHAMIDE [Suspect]
     Active Substance: CYCLOPHOSPHAMIDE
     Indication: Plasma cell myeloma
  6. BORTEZOMIB [Suspect]
     Active Substance: BORTEZOMIB
     Indication: Plasma cell myeloma
  7. DEXAMETHASONE [Suspect]
     Active Substance: DEXAMETHASONE
     Indication: Plasma cell myeloma
  8. DEXAMETHASONE [Suspect]
     Active Substance: DEXAMETHASONE
  9. CARFILZOMIB [Suspect]
     Active Substance: CARFILZOMIB
     Indication: Plasma cell myeloma
  10. BLINATUMOMAB [Suspect]
     Active Substance: BLINATUMOMAB
     Indication: Precursor B-lymphoblastic lymphoma
     Dosage: X3
  11. METHOTREXATE [Suspect]
     Active Substance: METHOTREXATE
     Indication: Precursor B-lymphoblastic lymphoma
     Route: 037
  12. INOTUZUMAB OZOGAMICIN [Suspect]
     Active Substance: INOTUZUMAB OZOGAMICIN
     Indication: Plasma cell myeloma refractory
     Dosage: X5

REACTIONS (4)
  - Death [Fatal]
  - Acute lymphocytic leukaemia [Unknown]
  - Dementia [Unknown]
  - Plasma cell myeloma refractory [Unknown]
